FAERS Safety Report 6818705-1 (Version None)
Quarter: 2010Q2

REPORT INFORMATION
  Report Type: 
  Country: None (occurrence: None)
  Receive Date: 20100630
  Receipt Date: 20090126
  Transmission Date: 20101027
  Serious: Yes (Life-Threatening, Hospitalization)
  Sender: FDA-Public Use
  Company Number: 20085898

PATIENT
  Age: 13 Year
  Sex: Female

DRUGS (1)
  1. LIORESAL [Suspect]
     Indication: MUSCLE SPASTICITY
     Dosage: 150-179.9 MCG, DAILY, INTRATHECAL
     Route: 037

REACTIONS (12)
  - ANXIETY [None]
  - APNOEA [None]
  - COMA [None]
  - DEVICE MALFUNCTION [None]
  - DEVICE OCCLUSION [None]
  - DYSPNOEA [None]
  - FATIGUE [None]
  - GRAND MAL CONVULSION [None]
  - MEDICAL DEVICE COMPLICATION [None]
  - MOVEMENT DISORDER [None]
  - MUSCULAR WEAKNESS [None]
  - OVERDOSE [None]
